FAERS Safety Report 16278283 (Version 3)
Quarter: 2019Q3

REPORT INFORMATION
  Report Type: Spontaneous
  Country: US (occurrence: US)
  Receive Date: 20190506
  Receipt Date: 20190708
  Transmission Date: 20191004
  Serious: Yes (Hospitalization)
  Sender: FDA-Public Use
  Company Number: US-PFIZER INC-2019188946

PATIENT
  Age: 65 Year
  Sex: Female
  Weight: 62 kg

DRUGS (1)
  1. GLYSET [Suspect]
     Active Substance: MIGLITOL
     Indication: HYPOGLYCAEMIA
     Dosage: UNK

REACTIONS (5)
  - Pneumonia [Recovered/Resolved]
  - Impaired healing [Unknown]
  - Pharyngitis streptococcal [Unknown]
  - Intestinal obstruction [Unknown]
  - Influenza [Unknown]

NARRATIVE: CASE EVENT DATE: 2017
